FAERS Safety Report 24765687 (Version 1)
Quarter: 2024Q4

REPORT INFORMATION
  Report Type: Spontaneous
  Country: BR (occurrence: BR)
  Receive Date: 20241223
  Receipt Date: 20241223
  Transmission Date: 20250114
  Serious: Yes (Hospitalization)
  Sender: ELI LILLY AND COMPANY
  Company Number: BR-ELI_LILLY_AND_COMPANY-BR202412005648

PATIENT
  Sex: Female

DRUGS (1)
  1. TIRZEPATIDE [Suspect]
     Active Substance: TIRZEPATIDE
     Indication: Product used for unknown indication
     Dosage: 15 MG, UNKNOWN

REACTIONS (7)
  - Illness [Unknown]
  - Gait disturbance [Unknown]
  - Aphasia [Unknown]
  - Vertigo [Unknown]
  - Headache [Unknown]
  - Feeling abnormal [Unknown]
  - Incorrect dose administered [Unknown]
